FAERS Safety Report 6057038-0 (Version None)
Quarter: 2009Q1

REPORT INFORMATION
  Report Type: 
  Country: None (occurrence: None)
  Receive Date: 20090129
  Receipt Date: 20090120
  Transmission Date: 20090719
  Serious: Yes (Death)
  Sender: FDA-Public Use
  Company Number: GB-TEVA-184240ISR

PATIENT
  Sex: Male

DRUGS (1)
  1. SIMVASTATIN [Suspect]
     Route: 048
     Dates: start: 20080901, end: 20080101

REACTIONS (2)
  - COMPLETED SUICIDE [None]
  - DEPRESSION [None]
